FAERS Safety Report 17114733 (Version 2)
Quarter: 2022Q2

REPORT INFORMATION
  Report Type: Report from Study
  Country: CA (occurrence: CA)
  Receive Date: 20191205
  Receipt Date: 20220611
  Transmission Date: 20220721
  Serious: Yes (Other)
  Sender: FDA-Public Use
  Company Number: CA-ABBVIE-19K-028-2801031-00

PATIENT
  Sex: Male

DRUGS (1)
  1. HUMIRA [Suspect]
     Active Substance: ADALIMUMAB
     Indication: Psoriasis
     Route: 058
     Dates: start: 20170907, end: 20190816

REACTIONS (7)
  - Spinal stenosis [Not Recovered/Not Resolved]
  - Cardiac dysfunction [Not Recovered/Not Resolved]
  - Hip surgery [Unknown]
  - Bladder disorder [Unknown]
  - Haemorrhoids [Not Recovered/Not Resolved]
  - Psoriasis [Not Recovered/Not Resolved]
  - COVID-19 [Unknown]

NARRATIVE: CASE EVENT DATE: 20170101
